FAERS Safety Report 15753294 (Version 1)
Quarter: 2018Q4

REPORT INFORMATION
  Report Type: Spontaneous
  Country: PT (occurrence: PT)
  Receive Date: 20181222
  Receipt Date: 20181222
  Transmission Date: 20190205
  Serious: Yes (Death)
  Sender: FDA-Public Use
  Company Number: PT-BAXTER-2018BAX030460

PATIENT
  Age: 81 Year
  Sex: Male

DRUGS (1)
  1. FLUCONAZOL CLARIS 2 MG/ML SOLU??O PARA PERFUS?O [Suspect]
     Active Substance: FLUCONAZOLE
     Indication: PRODUCT USED FOR UNKNOWN INDICATION
     Route: 065

REACTIONS (1)
  - Drug resistance [Fatal]
